FAERS Safety Report 5727729-7 (Version None)
Quarter: 2008Q2

REPORT INFORMATION
  Report Type: 
  Country: None (occurrence: None)
  Receive Date: 20080501
  Receipt Date: 20070827
  Transmission Date: 20081010
  Serious: Yes (Other)
  Sender: FDA-Public Use
  Company Number: PHEH2007US11092

PATIENT
  Sex: Female

DRUGS (4)
  1. DIOVAN HCT [Suspect]
     Dosage: 160 MG VAL/12.5MG HCT
     Dates: end: 20070702
  2. DIOVAN [Suspect]
  3. METOPROLOL TARTRATE [Concomitant]
  4. CLOPIDOGREL [Concomitant]

REACTIONS (3)
  - ALOPECIA [None]
  - DEPRESSION [None]
  - FATIGUE [None]
